FAERS Safety Report 9911645 (Version 1)
Quarter: 2014Q1

REPORT INFORMATION
  Report Type: Report from Study
  Country: US (occurrence: US)
  Receive Date: 20140219
  Receipt Date: 20140219
  Transmission Date: 20141002
  Serious: Yes (Hospitalization)
  Sender: FDA-Public Use
  Company Number: PHEH2014US003148

PATIENT
  Sex: Female

DRUGS (7)
  1. EXJADE [Suspect]
     Indication: MYELOFIBROSIS
     Dosage: 250 MG, DAILY
     Dates: start: 201308
  2. JAKAFI [Concomitant]
     Dosage: UNK UKN, UNK
     Dates: end: 201311
  3. FLUOXETINE HCL [Concomitant]
  4. PERCOCET [Concomitant]
  5. MORPHINE SULFATE [Concomitant]
  6. RED BLOOD CELLS [Concomitant]
  7. PLATELET [Concomitant]

REACTIONS (2)
  - Myelofibrosis [Unknown]
  - Leukaemia [Unknown]
